FAERS Safety Report 4653746-4 (Version None)
Quarter: 2005Q2

REPORT INFORMATION
  Report Type: 
  Country: None (occurrence: None)
  Receive Date: 20050504
  Receipt Date: 20050423
  Transmission Date: 20051028
  Serious: Yes (Life-Threatening, Hospitalization, Other)
  Sender: FDA-Public Use
  Company Number: 2005064312

PATIENT
  Age: 72 Year
  Sex: Male

DRUGS (2)
  1. BEXTRA [Suspect]
     Indication: ILL-DEFINED DISORDER
     Dates: end: 20050401
  2. ASPIRIN [Concomitant]

REACTIONS (7)
  - BLOOD PRESSURE DECREASED [None]
  - GASTROINTESTINAL NECROSIS [None]
  - INFLAMMATION [None]
  - ORGAN FAILURE [None]
  - RENAL FAILURE [None]
  - RESPIRATORY DISTRESS [None]
  - VASCULITIS [None]
